FAERS Safety Report 4648288-6 (Version None)
Quarter: 2005Q2

REPORT INFORMATION
  Report Type: 
  Country: None (occurrence: None)
  Receive Date: 20050426
  Receipt Date: 20050412
  Transmission Date: 20051028
  Serious: Yes (Other)
  Sender: FDA-Public Use
  Company Number: 2005058481

PATIENT
  Sex: Female

DRUGS (13)
  1. BEXTRA [Suspect]
     Indication: ARTHRALGIA
     Dosage: 40 MG
     Dates: start: 20010101
  2. CELEBREX [Suspect]
     Indication: ARTHRALGIA
  3. SIMVASTATIN [Concomitant]
  4. ALL OTHER THERAPEUTIC PRODUTCS (ALL OTHER THERAPEUTIC PRODUCTS) [Concomitant]
  5. FOLIC ACID [Concomitant]
  6. ATENOLOL [Concomitant]
  7. DICLOFENAC SODIUM [Concomitant]
  8. LEVOTHYROXINE SODIUM [Concomitant]
  9. RALOXIFENE HCL [Concomitant]
  10. RABEPRAZOLE SODIUM [Concomitant]
  11. LISINOPRIL [Concomitant]
  12. ASPIRIN [Concomitant]
  13. ALENDRONATE SODIUM [Concomitant]

REACTIONS (1)
  - STENT PLACEMENT [None]
